FAERS Safety Report 11397455 (Version 1)
Quarter: 2015Q3

REPORT INFORMATION
  Report Type: Spontaneous
  Country: FR (occurrence: FR)
  Receive Date: 20150819
  Receipt Date: 20150819
  Transmission Date: 20151125
  Serious: Yes (Other)
  Sender: FDA-Public Use
  Company Number: FR-BRISTOL-MYERS SQUIBB COMPANY-BMS-2015-053396

PATIENT
  Sex: Female

DRUGS (1)
  1. COUMADINE [Suspect]
     Active Substance: WARFARIN SODIUM
     Indication: THROMBOPHLEBITIS
     Route: 065

REACTIONS (3)
  - Abortion induced [Unknown]
  - Maternal exposure during pregnancy [Recovered/Resolved]
  - Gestational diabetes [Unknown]
